FAERS Safety Report 8125409-4 (Version None)
Quarter: 2012Q1

REPORT INFORMATION
  Report Type: 
  Country: None (occurrence: None)
  Receive Date: 20120209
  Receipt Date: 20120206
  Transmission Date: 20120608
  Serious: Yes (Hospitalization)
  Sender: FDA-Public Use
  Company Number: GB-MERCK-1111GBR00017

PATIENT
  Age: 75 Year
  Sex: Male

DRUGS (7)
  1. JANUVIA [Suspect]
     Route: 048
  2. PIOGLITAZONE HYDROCHLORIDE [Concomitant]
     Route: 065
  3. GLICLAZIDE [Concomitant]
     Route: 065
  4. ATORVASTATIN CALCIUM [Suspect]
     Route: 065
  5. RAMIPRIL [Concomitant]
     Route: 065
  6. ASPIRIN [Concomitant]
     Route: 065
  7. METFORMIN [Concomitant]
     Route: 065

REACTIONS (2)
  - DRUG INTERACTION [None]
  - RHABDOMYOLYSIS [None]
